FAERS Safety Report 16776528 (Version 2)
Quarter: 2021Q1

REPORT INFORMATION
  Report Type: Report from Study
  Country: US (occurrence: US)
  Receive Date: 20190905
  Receipt Date: 20210113
  Transmission Date: 20210419
  Serious: Yes (Hospitalization, Other)
  Sender: FDA-Public Use
  Company Number: US-BRISTOL-MYERS SQUIBB COMPANY-BMS-2019-071125

PATIENT
  Age: 63 Year
  Sex: Male
  Weight: 84.5 kg

DRUGS (3)
  1. NIVOLUMAB [Suspect]
     Active Substance: NIVOLUMAB
     Indication: METASTATIC MALIGNANT MELANOMA
     Dosage: 240 MILLIGRAM, Q2WK
     Route: 042
     Dates: start: 20190418, end: 20190523
  2. HYDROCORTISONE. [Concomitant]
     Active Substance: HYDROCORTISONE
     Indication: PRODUCT USED FOR UNKNOWN INDICATION
     Dosage: UNK
     Route: 065
  3. EGANELISIB. [Suspect]
     Active Substance: EGANELISIB
     Indication: METASTATIC MALIGNANT MELANOMA
     Dosage: 40 MILLIGRAM, QD
     Route: 048
     Dates: start: 20190418, end: 20190523

REACTIONS (3)
  - Vomiting [Recovered/Resolved]
  - Pneumonia bacterial [Recovered/Resolved]
  - Nausea [Recovered/Resolved]

NARRATIVE: CASE EVENT DATE: 20190707
